FAERS Safety Report 25137466 (Version 1)
Quarter: 2025Q1

REPORT INFORMATION
  Report Type: Spontaneous
  Country: CN (occurrence: CN)
  Receive Date: 20250329
  Receipt Date: 20250329
  Transmission Date: 20250409
  Serious: Yes (Hospitalization)
  Sender: ABBVIE
  Company Number: CN-ABBVIE-6198255

PATIENT
  Age: 69 Year
  Sex: Male
  Weight: 60 kg

DRUGS (2)
  1. VENETOCLAX [Suspect]
     Active Substance: VENETOCLAX
     Indication: Neoplasm malignant
     Dosage: 200 MILLIGRAM
     Route: 048
     Dates: start: 20250221, end: 20250313
  2. OLVEREMBATINIB [Suspect]
     Active Substance: OLVEREMBATINIB
     Indication: Neoplasm malignant
     Route: 048
     Dates: start: 20250221, end: 20250313

REACTIONS (3)
  - Myelosuppression [Unknown]
  - Cerebral infarction [Unknown]
  - Haemorrhoidal haemorrhage [Unknown]

NARRATIVE: CASE EVENT DATE: 20250314
